FAERS Safety Report 18855329 (Version 4)
Quarter: 2022Q1

REPORT INFORMATION
  Report Type: Report from Study
  Country: ZA (occurrence: ZA)
  Receive Date: 20210205
  Receipt Date: 20220127
  Transmission Date: 20220424
  Serious: Yes (Other)
  Sender: FDA-Public Use
  Company Number: ZA-GILEAD-2021-0515911

PATIENT
  Sex: Female
  Weight: 24.7 kg

DRUGS (13)
  1. COBICISTAT [Suspect]
     Active Substance: COBICISTAT
     Indication: HIV infection
     Dosage: 90 MG, QD
     Route: 048
     Dates: start: 20210106, end: 20210119
  2. COBICISTAT [Suspect]
     Active Substance: COBICISTAT
     Dosage: 90 MG, QD
     Route: 048
     Dates: start: 20210202, end: 20210211
  3. ATAZANAVIR [Suspect]
     Active Substance: ATAZANAVIR
     Indication: HIV infection
     Dosage: 200 MG, QD
     Route: 048
     Dates: start: 20210106, end: 20210119
  4. ATAZANAVIR [Suspect]
     Active Substance: ATAZANAVIR
     Dosage: 200 MG, QD
     Route: 048
     Dates: start: 20210202, end: 20210211
  5. LOPINAVIR [Concomitant]
     Active Substance: LOPINAVIR
     Indication: HIV infection
     Dosage: 200 MG
     Route: 065
     Dates: start: 20110930, end: 20210105
  6. LOPINAVIR [Concomitant]
     Active Substance: LOPINAVIR
     Dosage: UNK
     Dates: start: 20210120, end: 2021
  7. LOPINAVIR [Concomitant]
     Active Substance: LOPINAVIR
     Dosage: UNK
     Dates: start: 20210212
  8. RITONAVIR [Concomitant]
     Active Substance: RITONAVIR
     Indication: HIV infection
     Dosage: 100 MG
     Route: 065
     Dates: start: 20110930, end: 20210105
  9. RITONAVIR [Concomitant]
     Active Substance: RITONAVIR
     Dosage: UNK
     Dates: start: 20210120, end: 2021
  10. RITONAVIR [Concomitant]
     Active Substance: RITONAVIR
     Dosage: UNK
     Dates: start: 20210212
  11. TENOFOVIR ALAFENAMIDE [Concomitant]
     Active Substance: TENOFOVIR ALAFENAMIDE
     Indication: HIV infection
     Dates: start: 20190114
  12. EMTRICITABINE [Concomitant]
     Active Substance: EMTRICITABINE
     Indication: HIV infection
     Dates: start: 20210106
  13. ACETAMINOPHEN [Concomitant]
     Active Substance: ACETAMINOPHEN
     Indication: Abdominal pain
     Route: 048
     Dates: start: 2020

REACTIONS (1)
  - Hyperbilirubinaemia [Recovered/Resolved]

NARRATIVE: CASE EVENT DATE: 20210119
